FAERS Safety Report 16077128 (Version 1)
Quarter: 2019Q2

REPORT INFORMATION
  Report Type: Spontaneous
  Country: US (occurrence: US)
  Receive Date: 20190314
  Receipt Date: 20190314
  Transmission Date: 20190711
  Serious: Yes (Other)
  Sender: FDA-Public Use
  Company Number: None

PATIENT
  Age: 65 Year
  Sex: Female
  Weight: 93.6 kg

DRUGS (13)
  1. COENZYME Q10 [Concomitant]
     Active Substance: UBIDECARENONE
  2. TURMERIC [Concomitant]
     Active Substance: HERBALS\TURMERIC
  3. CBD OIL [Concomitant]
     Active Substance: CANNABIDIOL\HERBALS
  4. DAILY PROBIOTIC [Concomitant]
  5. TEA [Concomitant]
     Active Substance: TEA LEAF
  6. CONTROSYN [Concomitant]
  7. MULTI VITAMIN DAILY [Concomitant]
  8. VITAMIN D NOS [Concomitant]
     Active Substance: VITAMIN D NOS
  9. MELATONIN [Concomitant]
     Active Substance: MELATONIN
  10. AROMASIN [Concomitant]
     Active Substance: EXEMESTANE
  11. CHLORTHALIDONE. [Concomitant]
     Active Substance: CHLORTHALIDONE
  12. IBRANCE [Suspect]
     Active Substance: PALBOCICLIB
     Indication: BREAST CANCER
     Route: 048
     Dates: start: 20190118
  13. OMEGA 3 [Concomitant]
     Active Substance: OMEGA-3 FATTY ACIDS

REACTIONS (5)
  - Epistaxis [None]
  - Nausea [None]
  - Stomatitis [None]
  - Headache [None]
  - Fatigue [None]
